FAERS Safety Report 8582597-3 (Version None)
Quarter: 2012Q3

REPORT INFORMATION
  Report Type: 
  Country: None (occurrence: None)
  Receive Date: 20120809
  Receipt Date: 20120731
  Transmission Date: 20120928
  Serious: Yes (Hospitalization)
  Sender: FDA-Public Use
  Company Number: JP-AMGEN-JPNCT2012049825

PATIENT
  Age: 75 Year
  Sex: Female
  Weight: 52 kg

DRUGS (12)
  1. KAYEXALATE [Concomitant]
     Dosage: UNK
     Route: 048
  2. DARBEPOETIN ALFA - KHK [Suspect]
     Indication: NEPHROGENIC ANAEMIA
     Dosage: 60 MUG, Q2WK
     Route: 058
     Dates: start: 20110720, end: 20110720
  3. SENNOSIDE [Concomitant]
     Dosage: UNK
     Route: 048
  4. TANATRIL [Concomitant]
     Dosage: UNK
     Route: 048
  5. ALFAROL [Concomitant]
     Dosage: UNK
     Route: 048
  6. FERROUS CITRATE [Concomitant]
     Dosage: UNK
     Route: 048
  7. DARBEPOETIN ALFA - KHK [Suspect]
     Dosage: 60 MUG, Q4WK
     Route: 058
     Dates: start: 20111012
  8. CANDESARTAN CILEXETIL [Concomitant]
     Dosage: UNK
     Route: 048
  9. URINORM [Concomitant]
     Dosage: UNK
     Route: 048
  10. DARBEPOETIN ALFA - KHK [Suspect]
     Dosage: 40 MUG, Q2WK
     Route: 058
     Dates: start: 20110817, end: 20110928
  11. AMLODIPINE [Concomitant]
     Dosage: UNK
     Route: 048
  12. ATELEC [Concomitant]
     Dosage: UNK
     Route: 048

REACTIONS (1)
  - RENAL FAILURE [None]
